FAERS Safety Report 25030912 (Version 1)
Quarter: 2025Q1

REPORT INFORMATION
  Report Type: Spontaneous
  Country: FR (occurrence: FR)
  Receive Date: 20250303
  Receipt Date: 20250303
  Transmission Date: 20250409
  Serious: Yes (Hospitalization)
  Sender: MYLAN
  Company Number: None

PATIENT
  Age: 53 Year
  Sex: Female
  Weight: 73 kg

DRUGS (32)
  1. LANSOPRAZOLE [Suspect]
     Active Substance: LANSOPRAZOLE
     Indication: Dyspepsia
     Dosage: 15 MILLIGRAM, QD
     Dates: start: 20250115
  2. LANSOPRAZOLE [Suspect]
     Active Substance: LANSOPRAZOLE
     Dosage: 15 MILLIGRAM, QD
     Route: 048
     Dates: start: 20250115
  3. LANSOPRAZOLE [Suspect]
     Active Substance: LANSOPRAZOLE
     Dosage: 15 MILLIGRAM, QD
     Route: 048
     Dates: start: 20250115
  4. LANSOPRAZOLE [Suspect]
     Active Substance: LANSOPRAZOLE
     Dosage: 15 MILLIGRAM, QD
     Dates: start: 20250115
  5. VALGANCICLOVIR [Suspect]
     Active Substance: VALGANCICLOVIR
     Indication: Antibiotic prophylaxis
     Dosage: 900 MILLIGRAM, QD
     Dates: start: 20241224
  6. VALGANCICLOVIR [Suspect]
     Active Substance: VALGANCICLOVIR
     Dosage: 900 MILLIGRAM, QD
     Route: 048
     Dates: start: 20241224
  7. VALGANCICLOVIR [Suspect]
     Active Substance: VALGANCICLOVIR
     Dosage: 900 MILLIGRAM, QD
     Route: 048
     Dates: start: 20241224
  8. VALGANCICLOVIR [Suspect]
     Active Substance: VALGANCICLOVIR
     Dosage: 900 MILLIGRAM, QD
     Dates: start: 20241224
  9. BACTRIM [Suspect]
     Active Substance: SULFAMETHOXAZOLE\TRIMETHOPRIM
     Indication: Antibiotic prophylaxis
     Dosage: 1 DOSAGE FORM, QD
     Dates: start: 20250115, end: 20250203
  10. BACTRIM [Suspect]
     Active Substance: SULFAMETHOXAZOLE\TRIMETHOPRIM
     Dosage: 1 DOSAGE FORM, QD
     Route: 048
     Dates: start: 20250115, end: 20250203
  11. BACTRIM [Suspect]
     Active Substance: SULFAMETHOXAZOLE\TRIMETHOPRIM
     Dosage: 1 DOSAGE FORM, QD
     Route: 048
     Dates: start: 20250115, end: 20250203
  12. BACTRIM [Suspect]
     Active Substance: SULFAMETHOXAZOLE\TRIMETHOPRIM
     Dosage: 1 DOSAGE FORM, QD
     Dates: start: 20250115, end: 20250203
  13. ERYTHROMYCIN [Suspect]
     Active Substance: ERYTHROMYCIN
     Indication: Antibiotic prophylaxis
     Dosage: 1 DOSAGE FORM, QD
     Dates: start: 20250118, end: 20250130
  14. ERYTHROMYCIN [Suspect]
     Active Substance: ERYTHROMYCIN
     Dosage: 1 DOSAGE FORM, QD
     Route: 042
     Dates: start: 20250118, end: 20250130
  15. ERYTHROMYCIN [Suspect]
     Active Substance: ERYTHROMYCIN
     Dosage: 1 DOSAGE FORM, QD
     Route: 042
     Dates: start: 20250118, end: 20250130
  16. ERYTHROMYCIN [Suspect]
     Active Substance: ERYTHROMYCIN
     Dosage: 1 DOSAGE FORM, QD
     Dates: start: 20250118, end: 20250130
  17. LOVENOX [Suspect]
     Active Substance: ENOXAPARIN SODIUM
     Indication: Thrombosis prophylaxis
     Dosage: 4000 INTERNATIONAL UNIT, QD
     Dates: start: 20241224
  18. LOVENOX [Suspect]
     Active Substance: ENOXAPARIN SODIUM
     Dosage: 4000 INTERNATIONAL UNIT, QD
     Route: 058
     Dates: start: 20241224
  19. LOVENOX [Suspect]
     Active Substance: ENOXAPARIN SODIUM
     Dosage: 4000 INTERNATIONAL UNIT, QD
     Route: 058
     Dates: start: 20241224
  20. LOVENOX [Suspect]
     Active Substance: ENOXAPARIN SODIUM
     Dosage: 4000 INTERNATIONAL UNIT, QD
     Dates: start: 20241224
  21. TACROLIMUS [Suspect]
     Active Substance: TACROLIMUS
     Indication: Prophylaxis against transplant rejection
     Dosage: 6.5 MILLIGRAM, QD
     Dates: start: 20241224
  22. TACROLIMUS [Suspect]
     Active Substance: TACROLIMUS
     Dosage: 6.5 MILLIGRAM, QD
     Route: 048
     Dates: start: 20241224
  23. TACROLIMUS [Suspect]
     Active Substance: TACROLIMUS
     Dosage: 6.5 MILLIGRAM, QD
     Route: 048
     Dates: start: 20241224
  24. TACROLIMUS [Suspect]
     Active Substance: TACROLIMUS
     Dosage: 6.5 MILLIGRAM, QD
     Dates: start: 20241224
  25. CELLCEPT [Suspect]
     Active Substance: MYCOPHENOLATE MOFETIL
     Indication: Prophylaxis against transplant rejection
     Dosage: 1 GRAM, QD
     Dates: start: 20241224
  26. CELLCEPT [Suspect]
     Active Substance: MYCOPHENOLATE MOFETIL
     Dosage: 1 GRAM, QD
     Route: 048
     Dates: start: 20241224
  27. CELLCEPT [Suspect]
     Active Substance: MYCOPHENOLATE MOFETIL
     Dosage: 1 GRAM, QD
     Route: 048
     Dates: start: 20241224
  28. CELLCEPT [Suspect]
     Active Substance: MYCOPHENOLATE MOFETIL
     Dosage: 1 GRAM, QD
     Dates: start: 20241224
  29. AUGMENTIN [Suspect]
     Active Substance: AMOXICILLIN\CLAVULANATE POTASSIUM
     Indication: Infection
     Dosage: 2 DOSAGE FORM, QD
     Dates: start: 20250130, end: 20250203
  30. AUGMENTIN [Suspect]
     Active Substance: AMOXICILLIN\CLAVULANATE POTASSIUM
     Dosage: 2 DOSAGE FORM, QD
     Route: 048
     Dates: start: 20250130, end: 20250203
  31. AUGMENTIN [Suspect]
     Active Substance: AMOXICILLIN\CLAVULANATE POTASSIUM
     Dosage: 2 DOSAGE FORM, QD
     Route: 048
     Dates: start: 20250130, end: 20250203
  32. AUGMENTIN [Suspect]
     Active Substance: AMOXICILLIN\CLAVULANATE POTASSIUM
     Dosage: 2 DOSAGE FORM, QD
     Dates: start: 20250130, end: 20250203

REACTIONS (1)
  - Mixed liver injury [Not Recovered/Not Resolved]

NARRATIVE: CASE EVENT DATE: 20250130
